FAERS Safety Report 8105597-6 (Version None)
Quarter: 2012Q1

REPORT INFORMATION
  Report Type: 
  Country: None (occurrence: None)
  Receive Date: 20120201
  Receipt Date: 20120127
  Transmission Date: 20120608
  Serious: Yes (Other)
  Sender: FDA-Public Use
  Company Number: BR-ROCHE-1030946

PATIENT
  Sex: Female
  Weight: 66 kg

DRUGS (12)
  1. COMPOUNDED CREAM (BENADRYL, LIDOCAINE, TRIAMCINOLONE) [Concomitant]
  2. ANTI INFLAMMATORY/ANTI NAUSEA SHOT (NAME UNKNOWN) [Concomitant]
  3. MABTHERA [Suspect]
     Indication: RHEUMATOID ARTHRITIS
     Route: 042
     Dates: start: 20090601
  4. MABTHERA [Suspect]
     Dates: start: 20100201
  5. UNSPECIFIED DRUG [Concomitant]
  6. ACETAMINOPHEN [Concomitant]
     Indication: PREMEDICATION
     Route: 048
  7. METHYLPREDNISOLONE [Concomitant]
     Indication: PREMEDICATION
     Route: 042
  8. MABTHERA [Suspect]
     Dates: start: 20101001
  9. MABTHERA [Suspect]
     Dates: start: 20101015
  10. IBUPROFEN (ADVIL) [Concomitant]
     Indication: PAIN
  11. MABTHERA [Suspect]
     Dates: start: 20100127
  12. DIPHENHYDRAMINE HCL [Concomitant]
     Indication: PREMEDICATION

REACTIONS (10)
  - DIZZINESS [None]
  - JOINT RANGE OF MOTION DECREASED [None]
  - OEDEMA PERIPHERAL [None]
  - URINARY TRACT INFECTION [None]
  - PAIN IN EXTREMITY [None]
  - THERAPEUTIC RESPONSE DECREASED [None]
  - MALAISE [None]
  - ARTHRITIS [None]
  - NAUSEA [None]
  - PAIN [None]
